FAERS Safety Report 7423661-1 (Version None)
Quarter: 2011Q2

REPORT INFORMATION
  Report Type: 
  Country: None (occurrence: None)
  Receive Date: 20110411
  Receipt Date: 20110331
  Transmission Date: 20111010
  Serious: Yes (Death)
  Sender: FDA-Public Use
  Company Number: 1000018653

PATIENT
  Age: 72 Year
  Sex: Male

DRUGS (9)
  1. THEOPHYLLINE [Concomitant]
  2. SPIRIVA [Concomitant]
  3. CARVEDILOL [Concomitant]
  4. ASS STADA (ACETYLSALICYLIC ACID) [Concomitant]
  5. SITAGLIPTIN (SITAGLIPTIN) [Concomitant]
  6. AMLODIPINE [Concomitant]
  7. PREDNISONE TAB [Concomitant]
  8. SIMVASTATIN [Concomitant]
  9. ROFLUMILAST (ROFLUMILAST) (500 MICROGRAM, TABLETS) [Suspect]
     Dosage: 500 MCG (500 MCG, 1 IN 1 D), ORAL
     Route: 048
     Dates: start: 20100721, end: 20110106

REACTIONS (5)
  - WEIGHT DECREASED [None]
  - NAUSEA [None]
  - CEREBROVASCULAR ACCIDENT [None]
  - TACHYCARDIA [None]
  - DIZZINESS [None]
